FAERS Safety Report 7824239-8 (Version None)
Quarter: 2011Q4

REPORT INFORMATION
  Report Type: 
  Country: None (occurrence: None)
  Receive Date: 20111019
  Receipt Date: 20111007
  Transmission Date: 20120403
  Serious: Yes (Other)
  Sender: FDA-Public Use
  Company Number: CA-BAYER-2011-096391

PATIENT

DRUGS (1)
  1. BETASERON [Suspect]
     Dosage: UNK
     Route: 058
     Dates: end: 20090101

REACTIONS (2)
  - ADVERSE EVENT [None]
  - BONE DISORDER [None]
